FAERS Safety Report 6731210-6 (Version None)
Quarter: 2010Q2

REPORT INFORMATION
  Report Type: 
  Country: None (occurrence: None)
  Receive Date: 20100518
  Receipt Date: 20100510
  Transmission Date: 20101027
  Serious: Yes (Hospitalization)
  Sender: FDA-Public Use
  Company Number: FR-ABBOTT-10P-056-0643731-00

PATIENT
  Sex: Female

DRUGS (14)
  1. HUMIRA [Suspect]
     Indication: RHEUMATOID ARTHRITIS
     Dates: start: 20090901, end: 20091001
  2. HUMIRA [Suspect]
     Dates: start: 20100301, end: 20100414
  3. HUMIRA [Suspect]
     Dates: start: 20100301
  4. LEVOTHYROXINE SODIUM [Concomitant]
     Indication: DRUG USE FOR UNKNOWN INDICATION
  5. OMEPRAZOLE [Concomitant]
     Indication: DRUG USE FOR UNKNOWN INDICATION
  6. OROCAL D3 [Concomitant]
     Indication: DRUG USE FOR UNKNOWN INDICATION
  7. NOVATREX [Concomitant]
     Indication: DRUG USE FOR UNKNOWN INDICATION
  8. FOSAMAX [Concomitant]
     Indication: DRUG USE FOR UNKNOWN INDICATION
  9. SPECIAFOLDINE [Concomitant]
     Indication: DRUG USE FOR UNKNOWN INDICATION
  10. CELEBREX [Concomitant]
     Indication: DRUG USE FOR UNKNOWN INDICATION
  11. CORTANCYL [Concomitant]
     Indication: DRUG USE FOR UNKNOWN INDICATION
  12. MORPHINE SULFATE [Concomitant]
     Indication: DRUG USE FOR UNKNOWN INDICATION
  13. PARACETAMOL [Concomitant]
     Indication: DRUG USE FOR UNKNOWN INDICATION
  14. DOMEPERIDONE [Concomitant]
     Indication: DRUG USE FOR UNKNOWN INDICATION

REACTIONS (4)
  - ERYSIPELAS [None]
  - LYMPHOPENIA [None]
  - OSTEITIS [None]
  - WOUND [None]
